FAERS Safety Report 23220300 (Version 1)
Quarter: 2023Q4

REPORT INFORMATION
  Report Type: Spontaneous
  Country: US (occurrence: US)
  Receive Date: 20231123
  Receipt Date: 20231123
  Transmission Date: 20240109
  Serious: No
  Sender: FDA-Public Use
  Company Number: US-APOTEX-2023AP011978

PATIENT
  Sex: Female

DRUGS (5)
  1. KETOROLAC TROMETHAMINE [Suspect]
     Active Substance: KETOROLAC TROMETHAMINE
     Indication: Cataract operation
     Dosage: 1 GTT DROPS, BID (1 DROP IN THE MORNING AND 1 DROP IN THE EVENING BEFORE BEDTIME)
     Route: 047
     Dates: start: 20230802, end: 20230807
  2. KETOROLAC TROMETHAMINE [Suspect]
     Active Substance: KETOROLAC TROMETHAMINE
     Indication: Infection prophylaxis
  3. LAMOTRIGINE [Concomitant]
     Active Substance: LAMOTRIGINE
     Indication: Epilepsy
     Dosage: 75 MILLIGRAM, BID (IN THE MORNING AND IN THE EVENING)
     Route: 065
  4. ATORVASTATIN [Concomitant]
     Active Substance: ATORVASTATIN
     Indication: Blood cholesterol abnormal
     Dosage: 20 MILLIGRAM, Q.H.S.
     Route: 065
  5. MIRTAZAPINE [Concomitant]
     Active Substance: MIRTAZAPINE
     Indication: Insomnia
     Dosage: 7.5 MILLIGRAM
     Route: 065

REACTIONS (2)
  - Urticaria [Recovered/Resolved]
  - Musculoskeletal stiffness [Recovered/Resolved]

NARRATIVE: CASE EVENT DATE: 20230801
